FAERS Safety Report 15840525 (Version 5)
Quarter: 2019Q2

REPORT INFORMATION
  Report Type: Spontaneous
  Country: JP (occurrence: JP)
  Receive Date: 20190118
  Receipt Date: 20190410
  Transmission Date: 20190711
  Serious: Yes (Death, Other)
  Sender: FDA-Public Use
  Company Number: JP-BRISTOL-MYERS SQUIBB COMPANY-BMS-2016-089604

PATIENT
  Age: 72 Year
  Sex: Male
  Weight: 60.8 kg

DRUGS (1)
  1. OPDIVO [Suspect]
     Active Substance: NIVOLUMAB
     Indication: NON-SMALL CELL LUNG CANCER
     Dosage: 3 MG/KG, UNK
     Route: 041
     Dates: start: 20161011, end: 20161011

REACTIONS (3)
  - Malignant neoplasm progression [Fatal]
  - Pneumonia bacterial [Fatal]
  - Organising pneumonia [Fatal]

NARRATIVE: CASE EVENT DATE: 20161013
